FAERS Safety Report 17125483 (Version 2)
Quarter: 2024Q1

REPORT INFORMATION
  Report Type: Spontaneous
  Country: US (occurrence: US)
  Receive Date: 20191207
  Receipt Date: 20240203
  Transmission Date: 20240410
  Serious: Yes (Hospitalization, Other)
  Sender: FDA-Public Use
  Company Number: US-AUROBINDO-AUR-APL-2019-076178

PATIENT
  Age: 52 Year
  Sex: Male

DRUGS (2)
  1. NAPROXEN [Suspect]
     Active Substance: NAPROXEN
     Indication: Pain
     Dosage: UNK (AS NEEDED)
     Route: 065
  2. WARFARIN SODIUM [Suspect]
     Active Substance: WARFARIN SODIUM
     Indication: Atrial fibrillation
     Dosage: 5 MILLIGRAM PER DAY
     Route: 065

REACTIONS (5)
  - Drug interaction [Unknown]
  - Orbital haemorrhage [Recovered/Resolved with Sequelae]
  - Exophthalmos [Recovered/Resolved with Sequelae]
  - Diplopia [Recovered/Resolved]
  - Periorbital haematoma [Recovered/Resolved]
